FAERS Safety Report 12540485 (Version 2)
Quarter: 2016Q3

REPORT INFORMATION
  Report Type: Spontaneous
  Country: US (occurrence: US)
  Receive Date: 20160708
  Receipt Date: 20160708
  Transmission Date: 20161109
  Serious: Yes (Other)
  Sender: FDA-Public Use
  Company Number: ALCN2016US004632

PATIENT
  Age: 68 Year
  Sex: Male
  Weight: 68.27 kg

DRUGS (3)
  1. OFLOXACIN. [Suspect]
     Active Substance: OFLOXACIN
     Indication: POSTOPERATIVE CARE
     Dosage: 1 GTT, UNK
     Route: 047
     Dates: start: 20160128, end: 20160212
  2. PREDNISOLONE ACETATE. [Suspect]
     Active Substance: PREDNISOLONE ACETATE
     Indication: POSTOPERATIVE CARE
     Dosage: 1 GTT, UNK
     Route: 047
     Dates: start: 20160128, end: 20160228
  3. KETOROLAC TROMETHAMINE. [Suspect]
     Active Substance: KETOROLAC TROMETHAMINE
     Indication: POSTOPERATIVE CARE
     Route: 047

REACTIONS (4)
  - Macular degeneration [Unknown]
  - Halo vision [Recovered/Resolved]
  - Glare [Recovered/Resolved]
  - Visual acuity reduced [Recovered/Resolved]

NARRATIVE: CASE EVENT DATE: 20160212
